FAERS Safety Report 15405463 (Version 6)
Quarter: 2019Q3

REPORT INFORMATION
  Report Type: Report from Study
  Country: CA (occurrence: CA)
  Receive Date: 20180920
  Receipt Date: 20190925
  Transmission Date: 20191004
  Serious: Yes (Disabling, Other)
  Sender: FDA-Public Use
  Company Number: CA-BRISTOL-MYERS SQUIBB COMPANY-BMS-2018-077116

PATIENT
  Age: 54 Year
  Sex: Female

DRUGS (1)
  1. ABATACEPT [Suspect]
     Active Substance: ABATACEPT
     Indication: SYSTEMIC LUPUS ERYTHEMATOSUS
     Dosage: 250 MILLIGRAM, Q4WK
     Route: 065
     Dates: start: 20140925

REACTIONS (9)
  - Neck pain [Unknown]
  - Product dose omission [Unknown]
  - Intentional product use issue [Unknown]
  - Abdominal pain [Unknown]
  - Migraine with aura [Not Recovered/Not Resolved]
  - Lumbar vertebral fracture [Unknown]
  - Dysphagia [Unknown]
  - Spinal pain [Unknown]
  - Circumstance or information capable of leading to medication error [Unknown]

NARRATIVE: CASE EVENT DATE: 20181010
